FAERS Safety Report 6956481-2 (Version None)
Quarter: 2010Q3

REPORT INFORMATION
  Report Type: 
  Country: None (occurrence: None)
  Receive Date: 20100830
  Receipt Date: 20100820
  Transmission Date: 20110219
  Serious: Yes (Other)
  Sender: FDA-Public Use
  Company Number: US-AMGEN-QUU428605

PATIENT
  Sex: Female

DRUGS (3)
  1. ENBREL [Suspect]
     Indication: RHEUMATOID ARTHRITIS
     Route: 058
     Dates: start: 20100301, end: 20100801
  2. METHOTREXATE [Concomitant]
     Route: 048
  3. FOLATE SODIUM [Concomitant]
     Route: 048

REACTIONS (5)
  - CATARACT [None]
  - DERMATITIS PSORIASIFORM [None]
  - DISEASE RECURRENCE [None]
  - PRECANCEROUS SKIN LESION [None]
  - RHEUMATOID ARTHRITIS [None]
